FAERS Safety Report 24187910 (Version 1)
Quarter: 2024Q3

REPORT INFORMATION
  Report Type: Spontaneous
  Country: US (occurrence: US)
  Receive Date: 20240808
  Receipt Date: 20240808
  Transmission Date: 20241017
  Serious: Yes (Hospitalization, Other)
  Sender: CSL BEHRING
  Company Number: US-BEH-2024176526

PATIENT
  Sex: Male
  Weight: 94.331 kg

DRUGS (17)
  1. HAEGARDA [Suspect]
     Active Substance: HUMAN C1-ESTERASE INHIBITOR
     Indication: Hereditary angioedema
     Dosage: 6000 IU, BIW
     Route: 058
     Dates: start: 20180614
  2. HAEGARDA [Suspect]
     Active Substance: HUMAN C1-ESTERASE INHIBITOR
     Indication: Prophylaxis
  3. HYDROCHLOROTHIAZIDE\LOSARTAN POTASSIUM [Concomitant]
     Active Substance: HYDROCHLOROTHIAZIDE\LOSARTAN POTASSIUM
  4. EPINEPHRINE [Concomitant]
     Active Substance: EPINEPHRINE
  5. PRILOCAINE HYDROCHLORIDE [Concomitant]
     Active Substance: PRILOCAINE HYDROCHLORIDE
  6. LEVAQUIN [Concomitant]
     Active Substance: LEVOFLOXACIN
  7. LISINOPRIL AND HYDROCHLOROTHIAZIDE [Concomitant]
     Active Substance: HYDROCHLOROTHIAZIDE\LISINOPRIL
  8. SODIUM CHLORIDE [Concomitant]
     Active Substance: SODIUM CHLORIDE
  9. VANCOMYCIN HYDROCHLORIDE [Concomitant]
     Active Substance: VANCOMYCIN HYDROCHLORIDE
  10. EPINEPHRINE [Concomitant]
     Active Substance: EPINEPHRINE
  11. RUCONEST [Concomitant]
     Active Substance: CONESTAT ALFA
  12. ATORVASTATIN CALCIUM [Concomitant]
     Active Substance: ATORVASTATIN CALCIUM
  13. METOPROLOL [Concomitant]
     Active Substance: METOPROLOL
  14. HYDROCHLOROTHIAZIDE/RESERPINE [Concomitant]
  15. Centrum minis men 50+ [Concomitant]
  16. NORVASC [Concomitant]
     Active Substance: AMLODIPINE BESYLATE
  17. XARELTO [Concomitant]
     Active Substance: RIVAROXABAN

REACTIONS (1)
  - Hereditary angioedema [Unknown]
